FAERS Safety Report 14656212 (Version 1)
Quarter: 2018Q1

REPORT INFORMATION
  Report Type: Spontaneous
  Country: JP (occurrence: JP)
  Receive Date: 20180319
  Receipt Date: 20180319
  Transmission Date: 20180509
  Serious: Yes (Death)
  Sender: FDA-Public Use
  Company Number: JP-JNJFOC-20180313375

PATIENT
  Age: 84 Year
  Sex: Male

DRUGS (1)
  1. TRAMCET [Suspect]
     Active Substance: ACETAMINOPHEN\TRAMADOL
     Indication: CANCER PAIN
     Route: 048
     Dates: start: 20180208, end: 20180310

REACTIONS (5)
  - Product use in unapproved indication [Unknown]
  - Gallbladder cancer [Fatal]
  - Decreased appetite [Recovered/Resolved]
  - Off label use [Unknown]
  - Malaise [Recovered/Resolved]

NARRATIVE: CASE EVENT DATE: 2018
